FAERS Safety Report 11838955 (Version 35)
Quarter: 2018Q3

REPORT INFORMATION
  Report Type: Report from Study
  Country: CA (occurrence: CA)
  Receive Date: 20151216
  Receipt Date: 20180905
  Transmission Date: 20181010
  Serious: Yes (Death, Other)
  Sender: FDA-Public Use
  Company Number: CA-ROCHE-1134467

PATIENT
  Age: 72 Year
  Sex: Male
  Weight: 87 kg

DRUGS (15)
  1. ACTEMRA [Suspect]
     Active Substance: TOCILIZUMAB
     Route: 042
     Dates: start: 20120529
  2. ACTEMRA [Suspect]
     Active Substance: TOCILIZUMAB
     Route: 042
     Dates: start: 2006
  3. NORVASC [Suspect]
     Active Substance: AMLODIPINE BESYLATE
     Indication: PRODUCT USED FOR UNKNOWN INDICATION
     Route: 065
     Dates: end: 20160630
  4. ASAPHEN [Concomitant]
     Active Substance: ASPIRIN
  5. ACTEMRA [Suspect]
     Active Substance: TOCILIZUMAB
     Indication: RHEUMATOID ARTHRITIS
     Route: 042
     Dates: start: 20110802
  6. APO?ISMN [Concomitant]
  7. RHINARIS (CANADA) [Suspect]
     Active Substance: POLYETHYLENE GLYCOLS
     Indication: NASAL CRUSTING
     Route: 045
     Dates: end: 20160201
  8. FOLIC ACID. [Concomitant]
     Active Substance: FOLIC ACID
  9. ACTEMRA [Suspect]
     Active Substance: TOCILIZUMAB
     Route: 042
     Dates: start: 20130806
  10. ACTEMRA [Suspect]
     Active Substance: TOCILIZUMAB
     Route: 042
     Dates: start: 20141014
  11. ACTEMRA [Suspect]
     Active Substance: TOCILIZUMAB
     Route: 042
     Dates: start: 20160705
  12. NEXIUM [Concomitant]
     Active Substance: ESOMEPRAZOLE MAGNESIUM
  13. ACTEMRA [Suspect]
     Active Substance: TOCILIZUMAB
     Route: 042
     Dates: start: 20180125
  14. METHOTREXATE. [Suspect]
     Active Substance: METHOTREXATE
     Indication: PRODUCT USED FOR UNKNOWN INDICATION
     Route: 065
     Dates: start: 2018
  15. APO?AMLODIPINE [Concomitant]
     Active Substance: AMLODIPINE BESYLATE

REACTIONS (46)
  - Pulmonary fibrosis [Fatal]
  - Mass [Unknown]
  - Cough [Recovered/Resolved]
  - Rhinorrhoea [Recovering/Resolving]
  - Poor venous access [Unknown]
  - Excessive cerumen production [Unknown]
  - Platelet count decreased [Unknown]
  - Rhinorrhoea [Recovered/Resolved]
  - Blood pressure increased [Unknown]
  - Oedema peripheral [Not Recovered/Not Resolved]
  - Body temperature decreased [Unknown]
  - Pneumonia [Not Recovered/Not Resolved]
  - Rhinorrhoea [Unknown]
  - Sputum discoloured [Recovered/Resolved]
  - Cough [Recovering/Resolving]
  - Peripheral coldness [Unknown]
  - Peripheral swelling [Unknown]
  - Tooth fracture [Unknown]
  - Arthralgia [Not Recovered/Not Resolved]
  - Septic arthritis staphylococcal [Recovered/Resolved]
  - Hypotension [Unknown]
  - Pruritus [Not Recovered/Not Resolved]
  - Heart rate decreased [Unknown]
  - Ear pain [Recovered/Resolved]
  - Erythema [Unknown]
  - Dry skin [Not Recovered/Not Resolved]
  - Drug ineffective [Unknown]
  - Neck pain [Not Recovered/Not Resolved]
  - Acne [Not Recovered/Not Resolved]
  - White blood cell count decreased [Unknown]
  - Nasal congestion [Recovered/Resolved]
  - Nasal crusting [Unknown]
  - Nasopharyngitis [Recovered/Resolved]
  - Groin pain [Unknown]
  - Acne [Unknown]
  - Epistaxis [Unknown]
  - Chest discomfort [Unknown]
  - Blood pressure increased [Unknown]
  - Blood pressure diastolic decreased [Unknown]
  - Skin lesion [Not Recovered/Not Resolved]
  - Nasopharyngitis [Unknown]
  - Hypoaesthesia [Unknown]
  - Oropharyngeal pain [Recovered/Resolved]
  - Infusion related reaction [Unknown]
  - Blood pressure systolic increased [Unknown]
  - Essential tremor [Not Recovered/Not Resolved]

NARRATIVE: CASE EVENT DATE: 201207
